FAERS Safety Report 4405668-1 (Version None)
Quarter: 2004Q3

REPORT INFORMATION
  Report Type: 
  Country: None (occurrence: None)
  Receive Date: 20040723
  Receipt Date: 20031107
  Transmission Date: 20050211
  Serious: No
  Sender: FDA-Public Use
  Company Number: US-GLAXOSMITHKLINE-A0438842A

PATIENT
  Age: 67 Year
  Sex: Female

DRUGS (3)
  1. AVANDIA [Suspect]
     Dosage: 8MG PER DAY
     Route: 048
     Dates: start: 20021101
  2. PRANDIN [Concomitant]
     Route: 048
  3. AMARYL [Concomitant]
     Route: 048

REACTIONS (3)
  - COUGH [None]
  - DRY THROAT [None]
  - HEADACHE [None]
